FAERS Safety Report 15646682 (Version 1)
Quarter: 2018Q4

REPORT INFORMATION
  Report Type: Spontaneous
  Country: CZ (occurrence: CZ)
  Receive Date: 20181122
  Receipt Date: 20181122
  Transmission Date: 20190205
  Serious: Yes (Death)
  Sender: FDA-Public Use
  Company Number: CZ-AUROBINDO-AUR-APL-2018-056348

PATIENT
  Age: 2 Year
  Sex: Male

DRUGS (2)
  1. CODEINE [Suspect]
     Active Substance: CODEINE
     Indication: ANALGESIC THERAPY
     Dosage: 10 TO 12.5 MG
     Route: 065
  2. PARACETAMOL [Suspect]
     Active Substance: ACETAMINOPHEN
     Indication: ANALGESIC THERAPY
     Dosage: 120 MG AS NEEDED EVERY 4 TO 6 HOURS
     Route: 065

REACTIONS (2)
  - Dyspnoea [Fatal]
  - Wheezing [Unknown]
